FAERS Safety Report 15226962 (Version 3)
Quarter: 2019Q3

REPORT INFORMATION
  Report Type: Spontaneous
  Country: PL (occurrence: PL)
  Receive Date: 20180801
  Receipt Date: 20190709
  Transmission Date: 20191004
  Serious: Yes (Hospitalization, Other)
  Sender: FDA-Public Use
  Company Number: PL-BRISTOL-MYERS SQUIBB COMPANY-BMS-2018-070602

PATIENT
  Age: 68 Year
  Sex: Male

DRUGS (4)
  1. METFORMIN HYDROCHLORIDE. [Suspect]
     Active Substance: METFORMIN HYDROCHLORIDE
     Indication: TYPE 2 DIABETES MELLITUS
     Dosage: 3000 MG, QD
     Route: 048
     Dates: start: 201405, end: 201708
  2. INSULIN ASPART [Suspect]
     Active Substance: INSULIN ASPART
     Indication: TYPE 2 DIABETES MELLITUS
     Dosage: 1 DOSAGE FORM
     Route: 065
  3. INSULIN INJECTION [Suspect]
     Active Substance: INSULIN NOS
     Indication: PRODUCT USED FOR UNKNOWN INDICATION
     Dosage: 1 DOSAGE FORM
     Route: 065
  4. GLIMEPIRIDE. [Suspect]
     Active Substance: GLIMEPIRIDE
     Indication: PRODUCT USED FOR UNKNOWN INDICATION
     Dosage: 6 MILLIGRAM, MORNING
     Route: 065

REACTIONS (9)
  - Diabetic macroangiopathy [Unknown]
  - Diabetic retinopathy [Unknown]
  - Diabetes mellitus inadequate control [Unknown]
  - Hypoglycaemia [Unknown]
  - Disease progression [Unknown]
  - Hyperglycaemia [Unknown]
  - Diabetic nephropathy [Unknown]
  - Polyneuropathy [Unknown]
  - Therapeutic product effect incomplete [Unknown]
